FAERS Safety Report 9087470 (Version 1)
Quarter: 2013Q1

REPORT INFORMATION
  Report Type: Report from Study
  Country: US (occurrence: US)
  Receive Date: 20130130
  Receipt Date: 20130130
  Transmission Date: 20140127
  Serious: No
  Sender: FDA-Public Use
  Company Number: US-ABBOTT-12P-163-0980951-00

PATIENT
  Age: 22 Year
  Sex: Female

DRUGS (8)
  1. HUMIRA [Suspect]
     Indication: COLITIS ULCERATIVE
     Dates: start: 20120827, end: 20120827
  2. HUMIRA [Suspect]
     Dates: start: 20120911, end: 20120911
  3. HUMIRA [Suspect]
     Route: 058
  4. LIALDA [Concomitant]
     Indication: COLITIS ULCERATIVE
  5. ORTHO-CEPT [Concomitant]
     Indication: CONTRACEPTION
     Dosage: DAILY
  6. TRAMADOL [Concomitant]
     Indication: PAIN
  7. BENTYL [Concomitant]
     Indication: COLITIS ULCERATIVE
  8. PREDNISONE [Concomitant]
     Indication: PRODUCT USED FOR UNKNOWN INDICATION
     Dosage: DAILY TAPERING DOSE

REACTIONS (4)
  - Arthralgia [Not Recovered/Not Resolved]
  - Pyrexia [Unknown]
  - Arthralgia [Not Recovered/Not Resolved]
  - Arthralgia [Not Recovered/Not Resolved]
